FAERS Safety Report 6800634-0 (Version None)
Quarter: 2010Q2

REPORT INFORMATION
  Report Type: 
  Country: None (occurrence: None)
  Receive Date: 20100625
  Receipt Date: 20100625
  Transmission Date: 20101027
  Serious: Yes (Hospitalization)
  Sender: FDA-Public Use
  Company Number: None

PATIENT
  Sex: Female
  Weight: 61.8 kg

DRUGS (1)
  1. PREDNISONE [Suspect]
     Indication: CROHN'S DISEASE
     Dosage: 5-60 MG DAILY PO
     Route: 048
     Dates: start: 20080916, end: 20091116

REACTIONS (5)
  - CHEST PAIN [None]
  - OSTEOPENIA [None]
  - OSTEOPOROSIS [None]
  - SPINAL COMPRESSION FRACTURE [None]
  - VITAMIN D DECREASED [None]
